FAERS Safety Report 9656616 (Version 2)
Quarter: 2013Q4

REPORT INFORMATION
  Report Type: Spontaneous
  Country: US (occurrence: US)
  Receive Date: 20131030
  Receipt Date: 20131205
  Transmission Date: 20140711
  Serious: Yes (Other)
  Sender: FDA-Public Use
  Company Number: US-ASTELLAS-2013US010997

PATIENT
  Age: 88 Year
  Sex: Female
  Weight: 47 kg

DRUGS (1)
  1. MYRBETRIQ [Suspect]
     Indication: INCONTINENCE
     Dosage: 25 MG, UID/QD
     Route: 048
     Dates: start: 20131003, end: 20131006

REACTIONS (3)
  - Cough [Recovered/Resolved]
  - Choking [Recovered/Resolved]
  - Dyspnoea [Recovered/Resolved]
